FAERS Safety Report 21353572 (Version 1)
Quarter: 2022Q3

REPORT INFORMATION
  Report Type: Spontaneous
  Country: CA (occurrence: CA)
  Receive Date: 20220920
  Receipt Date: 20220920
  Transmission Date: 20221026
  Serious: Yes (Other)
  Sender: FDA-Public Use
  Company Number: CA-BRISTOL-MYERS SQUIBB COMPANY-2022-107945

PATIENT
  Age: 68 Year
  Sex: Female

DRUGS (6)
  1. ORENCIA [Suspect]
     Active Substance: ABATACEPT
     Indication: Product used for unknown indication
     Route: 058
  2. BARICITINIB [Concomitant]
     Active Substance: BARICITINIB
  3. ERELZI [Concomitant]
     Active Substance: ETANERCEPT-SZZS
  4. HUMIRA [Concomitant]
     Active Substance: ADALIMUMAB
     Route: 058
  5. METHOTREXATE [Concomitant]
     Active Substance: METHOTREXATE
  6. SIMPONI [Concomitant]
     Active Substance: GOLIMUMAB
     Route: 058

REACTIONS (18)
  - Arthralgia [Unknown]
  - Arthritis [Unknown]
  - Cataract [Unknown]
  - Drug hypersensitivity [Unknown]
  - Drug ineffective [Unknown]
  - Herpes zoster [Unknown]
  - Irritable bowel syndrome [Unknown]
  - Joint swelling [Unknown]
  - Musculoskeletal stiffness [Unknown]
  - Osteoarthritis [Unknown]
  - Pain [Unknown]
  - Poor quality sleep [Unknown]
  - Post herpetic neuralgia [Unknown]
  - Rhinorrhoea [Unknown]
  - Sinusitis [Unknown]
  - Swelling [Unknown]
  - Synovitis [Unknown]
  - Therapeutic product effect decreased [Unknown]
